FAERS Safety Report 17185466 (Version 1)
Quarter: 2019Q4

REPORT INFORMATION
  Report Type: Spontaneous
  Country: US (occurrence: US)
  Receive Date: 20191220
  Receipt Date: 20191220
  Transmission Date: 20200122
  Serious: No
  Sender: FDA-Public Use
  Company Number: US-MALLINCKRODT-T201901424

PATIENT
  Age: 65 Year
  Sex: Male

DRUGS (1)
  1. FENTANYL TRANSDERMAL SYSTEM [Suspect]
     Active Substance: FENTANYL
     Indication: PAIN
     Dosage: 100 MCG, EVERY 3 DAYS
     Route: 062

REACTIONS (6)
  - Rhinorrhoea [Recovered/Resolved]
  - Fatigue [Recovered/Resolved]
  - Therapeutic product effect decreased [Unknown]
  - Anxiety [Recovered/Resolved]
  - Lacrimation increased [Recovered/Resolved]
  - Withdrawal syndrome [Recovered/Resolved]
